FAERS Safety Report 24307869 (Version 2)
Quarter: 2024Q4

REPORT INFORMATION
  Report Type: Spontaneous
  Country: AR (occurrence: AR)
  Receive Date: 20240911
  Receipt Date: 20241017
  Transmission Date: 20250114
  Serious: No
  Sender: MIRUM PHARMACEUTICALS
  Company Number: AR-MIRUM PHARMACEUTICALS, INC.-AR-MIR-24-00697

PATIENT

DRUGS (2)
  1. LIVMARLI [Suspect]
     Active Substance: MARALIXIBAT CHLORIDE
     Indication: Alagille syndrome
     Dosage: 1.25 MILLILITER, QD
     Route: 048
     Dates: start: 20230908
  2. LIVMARLI [Suspect]
     Active Substance: MARALIXIBAT CHLORIDE
     Dosage: 1.25 MILLILITER, QD
     Route: 048
     Dates: start: 20230803, end: 20230908

REACTIONS (3)
  - Bile acids increased [Not Recovered/Not Resolved]
  - Pruritus [Recovering/Resolving]
  - Drug ineffective [Unknown]

NARRATIVE: CASE EVENT DATE: 20240815
